FAERS Safety Report 4816748-0 (Version None)
Quarter: 2005Q4

REPORT INFORMATION
  Report Type: 
  Country: None (occurrence: None)
  Receive Date: 20051101
  Receipt Date: 20050701
  Transmission Date: 20060501
  Serious: No
  Sender: FDA-Public Use
  Company Number: 57228

PATIENT
  Age: 3 Year

DRUGS (1)
  1. AMOXICILLIN [Suspect]
     Indication: DRUG USE FOR UNKNOWN INDICATION

REACTIONS (3)
  - ACCIDENTAL OVERDOSE [None]
  - DIARRHOEA [None]
  - DRUG DISPENSING ERROR [None]
